FAERS Safety Report 8182836-7 (Version None)
Quarter: 2012Q1

REPORT INFORMATION
  Report Type: 
  Country: None (occurrence: None)
  Receive Date: 20120305
  Receipt Date: 20120228
  Transmission Date: 20120608
  Serious: Yes (Hospitalization)
  Sender: FDA-Public Use
  Company Number: TR-US-EMD SERONO, INC.-7116218

PATIENT
  Sex: Male
  Weight: 75 kg

DRUGS (2)
  1. REBIF [Suspect]
     Indication: MULTIPLE SCLEROSIS
     Route: 058
     Dates: start: 20110701
  2. IBRUPROFEN [Suspect]
     Indication: ANALGESIC THERAPY
     Route: 048
     Dates: start: 20111101

REACTIONS (2)
  - BALANCE DISORDER [None]
  - VISION BLURRED [None]
